FAERS Safety Report 19132522 (Version 1)
Quarter: 2021Q2

REPORT INFORMATION
  Report Type: Spontaneous
  Country: IT (occurrence: IT)
  Receive Date: 20210414
  Receipt Date: 20210414
  Transmission Date: 20210717
  Serious: Yes (Other)
  Sender: FDA-Public Use
  Company Number: IT-AMGEN-ITASP2021055315

PATIENT
  Age: 64 Year
  Sex: Female

DRUGS (1)
  1. MVASI [Suspect]
     Active Substance: BEVACIZUMAB-AWWB
     Indication: DIABETIC RETINAL OEDEMA
     Dosage: 1.25 MILLIGRAM
     Route: 031
     Dates: start: 20201113, end: 20201218

REACTIONS (2)
  - Drug ineffective [Not Recovered/Not Resolved]
  - Diabetic retinal oedema [Not Recovered/Not Resolved]

NARRATIVE: CASE EVENT DATE: 20210219
